FAERS Safety Report 25486901 (Version 1)
Quarter: 2025Q2

REPORT INFORMATION
  Report Type: Spontaneous
  Country: CN (occurrence: CN)
  Receive Date: 20250627
  Receipt Date: 20250627
  Transmission Date: 20250716
  Serious: Yes (Hospitalization)
  Sender: ACCORD
  Company Number: CN-SA-2025SA119369

PATIENT
  Age: 64 Year
  Sex: Female
  Weight: 60 kg

DRUGS (13)
  1. DOCETAXEL [Suspect]
     Active Substance: DOCETAXEL
     Indication: Invasive breast carcinoma
     Dosage: 80 MG/M2 ONCE EVERY 3 WEEKS FOR A TOTAL OF 6 TIMES
     Dates: start: 20221114, end: 202211
  2. PERTUZUMAB [Suspect]
     Active Substance: PERTUZUMAB
     Indication: Invasive breast carcinoma
     Dosage: INITIAL DOSE 840 MG, MAINTENANCE DOSE 420 MG, ONCE EVERY 3 WEEKS FOR A TOTAL OF 6 TIMES
     Dates: start: 20221114, end: 202211
  3. TRASTUZUMAB [Suspect]
     Active Substance: TRASTUZUMAB
     Indication: Invasive breast carcinoma
     Dosage: INITIAL DOSE 8 MG/KG, MAINTENANCE DOSE 6 MG/KG, ONCE EVERY 3 WEEKS FOR A TOTAL OF 6 TIMES
     Dates: start: 20221114, end: 202211
  4. BISOPROLOL FUMARATE [Concomitant]
     Active Substance: BISOPROLOL FUMARATE
     Indication: Hypertension
  5. IRBESARTAN AND HYDROCHLOROTHIAZIDE [Concomitant]
     Active Substance: HYDROCHLOROTHIAZIDE\IRBESARTAN
     Indication: Hypertension
  6. NIFEDIPINE [Concomitant]
     Active Substance: NIFEDIPINE
     Indication: Hypertension
  7. TRASTUZUMAB [Suspect]
     Active Substance: TRASTUZUMAB
     Indication: Invasive breast carcinoma
     Dosage: MAINTENANCE DOSE 6 MG/KG, ONCE EVERY 3 WEEKS FOR A TOTAL OF 6 TIMES
     Dates: start: 20221114, end: 202211
  8. TRASTUZUMAB [Suspect]
     Active Substance: TRASTUZUMAB
     Indication: Triple positive breast cancer
     Dosage: INITIAL DOSE 8 MG/KG, MAINTENANCE DOSE 6 MG/KG, ONCE EVERY 3 WEEKS FOR A TOTAL OF 6 TIMES
     Dates: start: 20221114, end: 202211
  9. TRASTUZUMAB [Suspect]
     Active Substance: TRASTUZUMAB
     Indication: Triple positive breast cancer
     Dosage: MAINTENANCE DOSE 6 MG/KG, ONCE EVERY 3 WEEKS FOR A TOTAL OF 6 TIMES
     Dates: start: 20221114, end: 202211
  10. PERTUZUMAB [Suspect]
     Active Substance: PERTUZUMAB
     Indication: Triple positive breast cancer
     Dosage: INITIAL DOSE 840 MG, MAINTENANCE DOSE 420 MG, ONCE EVERY 3 WEEKS FOR A TOTAL OF 6 TIMES
     Dates: start: 20221114, end: 202211
  11. PERTUZUMAB [Suspect]
     Active Substance: PERTUZUMAB
     Indication: Invasive breast carcinoma
     Dosage: MAINTENANCE DOSE 420 MG, ONCE EVERY 3 WEEKS FOR A TOTAL OF 6 TIMES
     Dates: start: 20221114, end: 202211
  12. PERTUZUMAB [Suspect]
     Active Substance: PERTUZUMAB
     Indication: Triple positive breast cancer
     Dosage: MAINTENANCE DOSE 420 MG, ONCE EVERY 3 WEEKS FOR A TOTAL OF 6 TIMES
     Dates: start: 20221114, end: 202211
  13. DOCETAXEL [Suspect]
     Active Substance: DOCETAXEL
     Indication: Triple positive breast cancer
     Dosage: 80 MG/M2 ONCE EVERY 3 WEEKS FOR A TOTAL OF 6 TIMES
     Dates: start: 20221114, end: 202211

REACTIONS (5)
  - Acute kidney injury [Recovered/Resolved]
  - Nausea [Unknown]
  - Vomiting [Unknown]
  - Decreased appetite [Unknown]
  - Hypovolaemia [Unknown]

NARRATIVE: CASE EVENT DATE: 20221101
